FAERS Safety Report 15506647 (Version 1)
Quarter: 2018Q4

REPORT INFORMATION
  Report Type: Spontaneous
  Country: DE (occurrence: DE)
  Receive Date: 20181016
  Receipt Date: 20181016
  Transmission Date: 20190205
  Serious: No
  Sender: FDA-Public Use
  Company Number: DE-IPSEN BIOPHARMACEUTICALS, INC.-2018-15572

PATIENT
  Sex: Female

DRUGS (3)
  1. PROPOPHOL [Concomitant]
     Active Substance: PROPOFOL
     Indication: ANAESTHESIA
  2. EZICLEN [Suspect]
     Active Substance: MAGNESIUM SULFATE\POTASSIUM SULFATE\SODIUM SULFATE
     Indication: COLONOSCOPY
     Dates: start: 20180930
  3. EZICLEN [Suspect]
     Active Substance: MAGNESIUM SULFATE\POTASSIUM SULFATE\SODIUM SULFATE
     Dates: start: 20181001

REACTIONS (2)
  - Oesophageal pain [Unknown]
  - Oral pain [Unknown]
